FAERS Safety Report 8501699 (Version 2)
Quarter: 2014Q4

REPORT INFORMATION
  Report Type: Spontaneous
  Country: US (occurrence: US)
  Receive Date: 20120410
  Receipt Date: 20141010
  Transmission Date: 20150529
  Serious: Yes (Congenital Anomaly, Other)
  Sender: FDA-Public Use
  Company Number: US-ELI_LILLY_AND_COMPANY-US201203008977

PATIENT
  Sex: Female

DRUGS (2)
  1. PROZAC [Suspect]
     Active Substance: FLUOXETINE HYDROCHLORIDE
     Indication: PRODUCT USED FOR UNKNOWN INDICATION
     Dosage: UNK, UNKNOWN
     Route: 064
  2. PROZAC [Suspect]
     Active Substance: FLUOXETINE HYDROCHLORIDE
     Indication: PRODUCT USED FOR UNKNOWN INDICATION
     Dosage: UNK, UNKNOWN
     Route: 064

REACTIONS (9)
  - Foetal exposure during pregnancy [Unknown]
  - Hypertension [Unknown]
  - Dyspnoea [Unknown]
  - Sinus tachycardia [Unknown]
  - Aortic stenosis [Unknown]
  - Cardiac disorder [Unknown]
  - Syncope [Unknown]
  - Presyncope [Unknown]
  - Dyspepsia [Unknown]
